FAERS Safety Report 21961355 (Version 2)
Quarter: 2023Q1

REPORT INFORMATION
  Report Type: Spontaneous
  Country: US (occurrence: US)
  Receive Date: 20230207
  Receipt Date: 20230309
  Transmission Date: 20230417
  Serious: Yes (Other)
  Sender: FDA-Public Use
  Company Number: US-HORMOSAN PHARMA GMBH-2023-00705

PATIENT

DRUGS (1)
  1. QUETIAPINE [Suspect]
     Active Substance: QUETIAPINE
     Indication: Insomnia
     Dosage: 100 MILLIGRAM, QD, AT NIGHT
     Route: 048
     Dates: start: 20221225

REACTIONS (3)
  - Erectile dysfunction [Unknown]
  - Somnolence [Unknown]
  - Product use in unapproved indication [Unknown]
